FAERS Safety Report 26074664 (Version 2)
Quarter: 2025Q4

REPORT INFORMATION
  Report Type: Report from Study
  Country: US (occurrence: US)
  Receive Date: 20251121
  Receipt Date: 20251216
  Transmission Date: 20260118
  Serious: Yes (Hospitalization, Other)
  Sender: ABBVIE
  Company Number: US-ABBVIE-6558994

PATIENT
  Sex: Female

DRUGS (1)
  1. ELAHERE [Suspect]
     Active Substance: MIRVETUXIMAB SORAVTANSINE-GYNX
     Indication: Ovarian cancer
     Route: 042

REACTIONS (8)
  - Large intestinal obstruction [Unknown]
  - Constipation [Not Recovered/Not Resolved]
  - Nausea [Unknown]
  - White blood cell count increased [Recovered/Resolved]
  - Asthenia [Unknown]
  - Neoplasm [Unknown]
  - Necrosis [Unknown]
  - Laryngeal pain [Unknown]

NARRATIVE: CASE EVENT DATE: 20251109
